FAERS Safety Report 23432613 (Version 1)
Quarter: 2024Q1

REPORT INFORMATION
  Report Type: Spontaneous
  Country: CA (occurrence: CA)
  Receive Date: 20240123
  Receipt Date: 20240123
  Transmission Date: 20240409
  Serious: Yes (Other)
  Sender: FDA-Public Use
  Company Number: CA-EPICPHARMA-CA-2024EPCLIT00074

PATIENT
  Age: 21 Day
  Sex: Female

DRUGS (1)
  1. CEFTRIAXONE SODIUM [Suspect]
     Active Substance: CEFTRIAXONE SODIUM
     Indication: Lyme disease
     Route: 042

REACTIONS (2)
  - Jarisch-Herxheimer reaction [Recovered/Resolved]
  - Product use in unapproved indication [Unknown]
